FAERS Safety Report 18489883 (Version 1)
Quarter: 2020Q4

REPORT INFORMATION
  Report Type: Spontaneous
  Country: US (occurrence: US)
  Receive Date: 20201111
  Receipt Date: 20201111
  Transmission Date: 20210114
  Serious: Yes (Life-Threatening)
  Sender: FDA-Public Use
  Company Number: US-PFIZER INC-2020439374

PATIENT
  Age: 59 Year
  Sex: Male
  Weight: 63.5 kg

DRUGS (1)
  1. ALPRAZOLAM. [Suspect]
     Active Substance: ALPRAZOLAM
     Indication: ANXIETY
     Dosage: 1 MG, 4X/DAY, (1MG 4 TIMES A DAY BY MOUTH)
     Route: 048

REACTIONS (1)
  - Near death experience [Unknown]

NARRATIVE: CASE EVENT DATE: 201908
